FAERS Safety Report 11927400 (Version 1)
Quarter: 2016Q1

REPORT INFORMATION
  Report Type: Spontaneous
  Country: NZ (occurrence: NZ)
  Receive Date: 20160119
  Receipt Date: 20160119
  Transmission Date: 20160526
  Serious: Yes (Other)
  Sender: FDA-Public Use
  Company Number: NZ-ELI_LILLY_AND_COMPANY-NZ201601002520

PATIENT
  Sex: Male

DRUGS (1)
  1. ZYPREXA RELPREVV [Suspect]
     Active Substance: OLANZAPINE PAMOATE
     Indication: PRODUCT USED FOR UNKNOWN INDICATION
     Dosage: 300 MG, UNKNOWN
     Route: 030

REACTIONS (11)
  - Blood pressure decreased [Unknown]
  - Somnolence [Unknown]
  - Confusional state [Unknown]
  - Discomfort [Unknown]
  - Sedation [Unknown]
  - Agitation [Unknown]
  - Restlessness [Unknown]
  - Chest pain [Unknown]
  - Dysarthria [Unknown]
  - Myoclonus [Unknown]
  - Anxiety [Unknown]
